FAERS Safety Report 9130747 (Version 2)
Quarter: 2013Q3

REPORT INFORMATION
  Report Type: Report from Study
  Country: CA (occurrence: CA)
  Receive Date: 20130301
  Receipt Date: 20130905
  Transmission Date: 20140515
  Serious: Yes (Hospitalization, Other)
  Sender: FDA-Public Use
  Company Number: PHHY2013CA014581

PATIENT
  Age: 25 Year
  Sex: Female

DRUGS (2)
  1. GLEEVEC [Suspect]
     Indication: CHRONIC MYELOID LEUKAEMIA
     Dosage: 400 MG, QD
     Route: 048
     Dates: start: 201212
  2. GLEEVEC [Suspect]
     Indication: ACUTE MYELOID LEUKAEMIA

REACTIONS (6)
  - Decreased immune responsiveness [Unknown]
  - Infection [Unknown]
  - Leukaemic infiltration brain [Unknown]
  - Nausea [Unknown]
  - Vomiting [Unknown]
  - Decreased appetite [Unknown]
